FAERS Safety Report 7014255-0 (Version None)
Quarter: 2010Q3

REPORT INFORMATION
  Report Type: 
  Country: None (occurrence: None)
  Receive Date: 20100927
  Receipt Date: 20100914
  Transmission Date: 20110219
  Serious: Yes (Other)
  Sender: FDA-Public Use
  Company Number: CA-US-EMD SERONO, INC.-230330K09CAN

PATIENT
  Sex: Female

DRUGS (5)
  1. REBIF [Suspect]
     Indication: RELAPSING-REMITTING MULTIPLE SCLEROSIS
     Dates: start: 20061204, end: 20091101
  2. EXTRA STRENGTH TYLENOL [Concomitant]
  3. WARFARIN [Concomitant]
  4. PROPRANOLOL [Concomitant]
  5. CRESTOR [Concomitant]

REACTIONS (10)
  - ARTERIAL THROMBOSIS [None]
  - CENTRAL NERVOUS SYSTEM LESION [None]
  - DRUG INEFFECTIVE [None]
  - HEADACHE [None]
  - HYPOAESTHESIA [None]
  - MIGRAINE [None]
  - PERIARTHRITIS [None]
  - PERIPHERAL VASCULAR DISORDER [None]
  - THROMBOANGIITIS OBLITERANS [None]
  - VERTIGO [None]
